FAERS Safety Report 8601600-5 (Version None)
Quarter: 2012Q3

REPORT INFORMATION
  Report Type: 
  Country: None (occurrence: None)
  Receive Date: 20120817
  Receipt Date: 20111214
  Transmission Date: 20120928
  Serious: No
  Sender: FDA-Public Use
  Company Number: US-BRISTOL-MYERS SQUIBB COMPANY-16293888

PATIENT
  Age: 80 Year
  Sex: Female

DRUGS (9)
  1. OSTEO BI-FLEX [Concomitant]
  2. CRESTOR [Concomitant]
  3. MOBIC [Concomitant]
     Indication: ARTHRALGIA
  4. CLONAZEPAM [Concomitant]
  5. MULTI-VITAMIN [Concomitant]
  6. SPRYCEL [Suspect]
     Dates: start: 20111101
  7. PAXIL [Concomitant]
  8. TYLENOL [Concomitant]
  9. XANAX [Concomitant]
     Dosage: 1DF=0.25

REACTIONS (1)
  - FATIGUE [None]
